FAERS Safety Report 8949907 (Version 1)
Quarter: 2012Q4

REPORT INFORMATION
  Report Type: 
  Country: PE (occurrence: PE)
  Receive Date: 20121205
  Receipt Date: 20121205
  Transmission Date: 20130627
  Serious: Yes (Death, Hospitalization)
  Sender: FDA-Public Use
  Company Number: PE-FRI-1000040616

PATIENT
  Age: 48 Year
  Sex: Female

DRUGS (3)
  1. PROPRANOLOL [Suspect]
     Dosage: 120 mg
     Route: 048
  2. METHIMAZOLE [Suspect]
     Indication: BASEDOW^S DISEASE
     Dosage: 5 mg
  3. FUROSEMIDE [Suspect]
     Dosage: 40 mg

REACTIONS (16)
  - Tremor [Unknown]
  - Oedema peripheral [Unknown]
  - Pulmonary congestion [Unknown]
  - Febrile neutropenia [None]
  - Haematocrit decreased [None]
  - White blood cell count decreased [None]
  - Haemoptysis [None]
  - General physical health deterioration [None]
  - Bronchopulmonary aspergillosis [Fatal]
  - Neutropenia [Fatal]
  - Multi-organ failure [Fatal]
  - Cardiomegaly [Unknown]
  - Palpitations [Unknown]
  - Sinus tachycardia [Unknown]
  - Dysphagia [Unknown]
  - Oral candidiasis [Unknown]
